FAERS Safety Report 25300772 (Version 1)
Quarter: 2025Q2

REPORT INFORMATION
  Report Type: Spontaneous
  Country: IN (occurrence: IN)
  Receive Date: 20250512
  Receipt Date: 20250512
  Transmission Date: 20250716
  Serious: Yes (Other)
  Sender: PFIZER
  Company Number: IN-PFIZER INC-PV202500055989

PATIENT
  Age: 68 Year
  Sex: Male

DRUGS (1)
  1. LORLATINIB [Suspect]
     Active Substance: LORLATINIB
     Dosage: 100 MG, 1X/DAY
     Route: 048

REACTIONS (5)
  - Hypothyroidism [Unknown]
  - Pleural effusion [Unknown]
  - Blood pressure increased [Unknown]
  - Oedema peripheral [Unknown]
  - Blood glucose abnormal [Unknown]
